FAERS Safety Report 8965080 (Version 1)
Quarter: 2012Q4

REPORT INFORMATION
  Report Type: 
  Country: US (occurrence: US)
  Receive Date: 20121213
  Receipt Date: 20121213
  Transmission Date: 20130627
  Serious: Yes (Other)
  Sender: FDA-Public Use
  Company Number: US-BRISTOL-MYERS SQUIBB COMPANY-16545022

PATIENT
  Age: 82 Year
  Sex: Female

DRUGS (4)
  1. PRAVACHOL [Suspect]
  2. ZOCOR [Suspect]
  3. LOSARTAN [Suspect]
  4. CRESTOR [Suspect]

REACTIONS (1)
  - Muscular weakness [Unknown]
